FAERS Safety Report 5745412-9 (Version None)
Quarter: 2008Q2

REPORT INFORMATION
  Report Type: 
  Country: None (occurrence: None)
  Receive Date: 20080521
  Receipt Date: 20080515
  Transmission Date: 20081010
  Serious: Yes (Hospitalization)
  Sender: FDA-Public Use
  Company Number: FR-BRISTOL-MYERS SQUIBB COMPANY-14197800

PATIENT
  Age: 63 Year
  Sex: Male

DRUGS (3)
  1. GLUCOVANCE [Suspect]
     Dosage: 1 DOSAGE FORM = 1 TABLET
     Route: 048
     Dates: end: 20080330
  2. VASTAREL [Concomitant]
     Route: 048
  3. PERINDOPRIL ERBUMINE [Concomitant]

REACTIONS (3)
  - HYPOGLYCAEMIA [None]
  - MALAISE [None]
  - MEDICATION ERROR [None]
